FAERS Safety Report 10011024 (Version 1)
Quarter: 2014Q1

REPORT INFORMATION
  Report Type: Spontaneous
  Country: PL (occurrence: None)
  Receive Date: 20140312
  Receipt Date: 20140312
  Transmission Date: 20141002
  Serious: Yes (Hospitalization)
  Sender: FDA-Public Use
  Company Number: IMP_07496_2014

PATIENT
  Age: 51 Year
  Sex: Female

DRUGS (3)
  1. SODIUM VALPROATE (SODIUM VALPROATE) [Suspect]
     Indication: DEPRESSION
  2. SERTRALINE [Concomitant]
  3. OLANZAPINE [Concomitant]

REACTIONS (3)
  - Stevens-Johnson syndrome [None]
  - Toxic epidermal necrolysis [None]
  - Systemic lupus erythematosus [None]
